FAERS Safety Report 24443683 (Version 2)
Quarter: 2024Q4

REPORT INFORMATION
  Report Type: Report from Study
  Country: US (occurrence: US)
  Receive Date: 20241016
  Receipt Date: 20241017
  Transmission Date: 20250115
  Serious: No
  Sender: ROCHE
  Company Number: US-ROCHE-1949122

PATIENT
  Age: 45 Year
  Sex: Female

DRUGS (2)
  1. RITUXAN [Suspect]
     Active Substance: RITUXIMAB
     Indication: Systemic lupus erythematosus
     Dosage: STRENGTH:500 MG 1 AND 100 MG 2 INJECTION TOTALING TO 700 MG,  NEXT DOSE WAS RECEIVED ON 08/JUN/2017,
     Route: 042
  2. RITUXAN [Suspect]
     Active Substance: RITUXIMAB
     Dosage: STRENGTH:500 MG 1 AND 100 MG 2 INJECTION TOTALING TO 700 MG, REPEAT IN 4 MONTHS
     Route: 042

REACTIONS (2)
  - No adverse event [Unknown]
  - Off label use [Unknown]
